FAERS Safety Report 4455227-X (Version None)
Quarter: 2004Q3

REPORT INFORMATION
  Report Type: 
  Country: None (occurrence: None)
  Receive Date: 20040830
  Receipt Date: 20040503
  Transmission Date: 20050211
  Serious: No
  Sender: FDA-Public Use
  Company Number: 205855

PATIENT
  Sex: Female

DRUGS (2)
  1. XOLAIR [Suspect]
     Dosage: 300,Q2W,SUBCUTANEOUS
     Route: 058
  2. PREDNISONE [Concomitant]

REACTIONS (1)
  - MUSCLE CRAMP [None]
